FAERS Safety Report 7042140-7 (Version None)
Quarter: 2010Q4

REPORT INFORMATION
  Report Type: 
  Country: None (occurrence: None)
  Receive Date: 20101013
  Receipt Date: 20100420
  Transmission Date: 20110411
  Serious: No
  Sender: FDA-Public Use
  Company Number: US-ASTRAZENECA-2010SE16087

PATIENT
  Age: 26475 Day
  Sex: Female
  Weight: 59 kg

DRUGS (7)
  1. SYMBICORT [Suspect]
     Indication: COUGH
     Dosage: 2 PUFFS
     Route: 055
     Dates: start: 20100309, end: 20100405
  2. SYMBICORT [Suspect]
     Indication: DYSPNOEA
     Dosage: 2 PUFFS
     Route: 055
     Dates: start: 20100309, end: 20100405
  3. SYMBICORT [Suspect]
     Dosage: 2 PUFFS
     Route: 055
     Dates: start: 20100309, end: 20100405
  4. COUMADIN [Concomitant]
  5. VITAMINS [Concomitant]
  6. AVELIDE [Concomitant]
  7. AVAPRO [Concomitant]

REACTIONS (5)
  - ANOSMIA [None]
  - DYSGEUSIA [None]
  - NASOPHARYNGITIS [None]
  - ORAL PAIN [None]
  - STOMATITIS [None]
